FAERS Safety Report 10072028 (Version 1)
Quarter: 2014Q2

REPORT INFORMATION
  Report Type: Spontaneous
  Country: TR (occurrence: None)
  Receive Date: 20140409
  Receipt Date: 20140409
  Transmission Date: 20141212
  Serious: Yes (Life-Threatening)
  Sender: FDA-Public Use
  Company Number: FK201401225

PATIENT
  Age: 41 Year
  Sex: Female

DRUGS (1)
  1. AMIODARONE HCL (AMIODARONE HYDROCHLORIDE) [Suspect]
     Indication: PRODUCT USED FOR UNKNOWN INDICATION
     Route: 048

REACTIONS (4)
  - Torsade de pointes [None]
  - Cardiac arrest [None]
  - Sinus bradycardia [None]
  - Electrocardiogram QT prolonged [None]
